FAERS Safety Report 14042710 (Version 1)
Quarter: 2017Q4

REPORT INFORMATION
  Report Type: Spontaneous
  Country: US (occurrence: US)
  Receive Date: 20171004
  Receipt Date: 20171004
  Transmission Date: 20180321
  Serious: No
  Sender: FDA-Public Use
  Company Number: US-INDIVIOR LIMITED-INDV-096360-2016

PATIENT
  Sex: Male

DRUGS (4)
  1. SUBOXONE [Suspect]
     Active Substance: BUPRENORPHINE HYDROCHLORIDE\NALOXONE HYDROCHLORIDE
     Indication: DRUG USE DISORDER
     Dosage: 24MG, DAILY
     Route: 060
     Dates: start: 2015, end: 2015
  2. BUPRENORPHINE GENERIC TAB [Suspect]
     Active Substance: BUPRENORPHINE
     Indication: DRUG USE DISORDER
     Dosage: 8MG, DAILY
     Route: 060
     Dates: start: 2016, end: 2016
  3. SUBOXONE [Suspect]
     Active Substance: BUPRENORPHINE HYDROCHLORIDE\NALOXONE HYDROCHLORIDE
     Dosage: TAPERED DOWN TO 12MG, DAILY
     Route: 060
     Dates: start: 2015, end: 2016
  4. BUPRENORPHINE GENERIC TAB [Suspect]
     Active Substance: BUPRENORPHINE
     Dosage: 8MG, DAILY
     Route: 060
     Dates: start: 2016, end: 20161101

REACTIONS (7)
  - Peripheral swelling [Recovered/Resolved]
  - Oral disorder [Recovered/Resolved]
  - Urinary retention [Not Recovered/Not Resolved]
  - Muscle spasms [Recovered/Resolved]
  - Drug withdrawal syndrome [Recovered/Resolved]
  - Hypersensitivity [Recovered/Resolved]
  - Stomatitis [Recovered/Resolved]

NARRATIVE: CASE EVENT DATE: 2015
